FAERS Safety Report 4846141-6 (Version None)
Quarter: 2005Q4

REPORT INFORMATION
  Report Type: 
  Country: None (occurrence: None)
  Receive Date: 20051201
  Receipt Date: 20051118
  Transmission Date: 20060501
  Serious: Yes (Death)
  Sender: FDA-Public Use
  Company Number: 2005152042

PATIENT
  Age: 75 Year
  Sex: Male

DRUGS (2)
  1. XALATAN [Suspect]
     Indication: GLAUCOMA
     Dosage: 1 DROP (1 DROP, 1 IN 1 D), OPHTHALMIC
     Route: 047
     Dates: start: 20000101
  2. TEGRETOL [Concomitant]

REACTIONS (3)
  - GASTRIC INFECTION [None]
  - HYPOTENSION [None]
  - LUNG INFECTION [None]
